FAERS Safety Report 17466665 (Version 2)
Quarter: 2020Q1

REPORT INFORMATION
  Report Type: Spontaneous
  Country: NL (occurrence: NL)
  Receive Date: 20200227
  Receipt Date: 20200313
  Transmission Date: 20200409
  Serious: Yes (Other)
  Sender: FDA-Public Use
  Company Number: NVSC2020NL052136

PATIENT

DRUGS (2)
  1. TRAMETINIB [Suspect]
     Active Substance: TRAMETINIB
     Indication: PRODUCT USED FOR UNKNOWN INDICATION
     Dosage: 0.625 MG, QD (TUBE-FEEDING)
     Route: 065
  2. DABRAFENIB [Suspect]
     Active Substance: DABRAFENIB
     Indication: PRODUCT USED FOR UNKNOWN INDICATION
     Dosage: 50 MG, BID (TUBE-FEEDING)
     Route: 065

REACTIONS (4)
  - Hypoglycaemia [Unknown]
  - Hyperinsulinaemia [Unknown]
  - Product use issue [Unknown]
  - Wrong technique in product usage process [Unknown]
